FAERS Safety Report 6016196-4 (Version None)
Quarter: 2008Q4

REPORT INFORMATION
  Report Type: 
  Country: None (occurrence: None)
  Receive Date: 20081218
  Receipt Date: 20081113
  Transmission Date: 20090506
  Serious: Yes (Other)
  Sender: FDA-Public Use
  Company Number: US025057

PATIENT
  Age: 66 Year
  Sex: Female

DRUGS (5)
  1. TRISENOX [Suspect]
     Indication: ACUTE PROMYELOCYTIC LEUKAEMIA
     Dosage: 4.75 MG QD INTRAVENOUS DRIP
     Route: 041
     Dates: start: 20080206, end: 20080208
  2. TRISENOX [Suspect]
     Indication: ACUTE PROMYELOCYTIC LEUKAEMIA
     Dosage: 4.75 MG QD INTRAVENOUS DRIP
     Route: 041
     Dates: start: 20080212, end: 20080307
  3. TRISENOX [Suspect]
     Indication: ACUTE PROMYELOCYTIC LEUKAEMIA
     Dosage: 4.75 MG QD INTRAVENOUS DRIP
     Route: 041
     Dates: start: 20080309, end: 20080314
  4. HUMAN ANTITHROMBIN 3 CONCENTRATED [Concomitant]
  5. INSULIN [Concomitant]

REACTIONS (8)
  - ACUTE PROMYELOCYTIC LEUKAEMIA DIFFERENTIATION SYNDROME [None]
  - ALANINE AMINOTRANSFERASE INCREASED [None]
  - ASPARTATE AMINOTRANSFERASE INCREASED [None]
  - BLOOD LACTATE DEHYDROGENASE INCREASED [None]
  - GAMMA-GLUTAMYLTRANSFERASE INCREASED [None]
  - HEPATIC FUNCTION ABNORMAL [None]
  - PERICARDIAL EFFUSION [None]
  - PSEUDOMEMBRANOUS COLITIS [None]
